FAERS Safety Report 4520314-4 (Version None)
Quarter: 2004Q4

REPORT INFORMATION
  Report Type: 
  Country: None (occurrence: None)
  Receive Date: 20041203
  Receipt Date: 20041123
  Transmission Date: 20050328
  Serious: No
  Sender: FDA-Public Use
  Company Number: 04H-044-0281766-00

PATIENT
  Sex: Female
  Weight: 60 kg

DRUGS (4)
  1. PENTOTHAL [Suspect]
     Indication: GENERAL ANAESTHESIA
     Dosage: SEE IMAGE. INTRAVENOUS
     Route: 042
     Dates: start: 20041104, end: 20041104
  2. CITALOPRAM [Suspect]
     Indication: DEPRESSION
     Dosage: 20 MG, ORAL
     Route: 048
  3. CONTRACEPTIVE PILLS [Concomitant]
  4. PAIN KILLERS [Concomitant]

REACTIONS (4)
  - ANAESTHETIC COMPLICATION [None]
  - DRUG INTERACTION [None]
  - HYPOVENTILATION [None]
  - MUSCLE RIGIDITY [None]
